FAERS Safety Report 8985313 (Version 1)
Quarter: 2012Q4

REPORT INFORMATION
  Report Type: Report from Study
  Country: US (occurrence: US)
  Receive Date: 20121226
  Receipt Date: 20121226
  Transmission Date: 20130627
  Serious: Yes (Other)
  Sender: FDA-Public Use
  Company Number: US-PFIZER INC-2012321834

PATIENT
  Age: 44 Year
  Sex: Female

DRUGS (1)
  1. GABAPENTIN [Suspect]
     Indication: HEMICRANIA
     Dosage: 3600 mg, Daily

REACTIONS (1)
  - Cognitive disorder [Recovered/Resolved]
